FAERS Safety Report 14682752 (Version 1)
Quarter: 2018Q1

REPORT INFORMATION
  Report Type: Spontaneous
  Country: HK (occurrence: HK)
  Receive Date: 20180327
  Receipt Date: 20180327
  Transmission Date: 20180509
  Serious: Yes (Hospitalization, Other)
  Sender: FDA-Public Use
  Company Number: HK-CHARTWELL PHARMA-2044575

PATIENT
  Age: 50 Year
  Sex: Male

DRUGS (1)
  1. DISULFIRAM. [Suspect]
     Active Substance: DISULFIRAM
     Indication: PROPHYLAXIS

REACTIONS (1)
  - Toxic encephalopathy [Recovered/Resolved]
